FAERS Safety Report 26097663 (Version 1)
Quarter: 2025Q4

REPORT INFORMATION
  Report Type: Report from Study
  Country: US (occurrence: US)
  Receive Date: 20251127
  Receipt Date: 20251127
  Transmission Date: 20260119
  Serious: No
  Sender: MALLINCKRODT
  Company Number: US-MALLINCKRODT-MNK202507493

PATIENT
  Age: 8 Month
  Sex: Male
  Weight: 10 kg

DRUGS (1)
  1. CORTICOTROPIN [Suspect]
     Active Substance: CORTICOTROPIN
     Indication: Infantile spasms
     Route: 030
     Dates: start: 20251122

REACTIONS (2)
  - Injection site scar [Unknown]
  - Underdose [Unknown]

NARRATIVE: CASE EVENT DATE: 20251101
